FAERS Safety Report 23901027 (Version 1)
Quarter: 2024Q2

REPORT INFORMATION
  Report Type: Spontaneous
  Country: US (occurrence: US)
  Receive Date: 20240526
  Receipt Date: 20240526
  Transmission Date: 20240715
  Serious: No
  Sender: FDA-Public Use
  Company Number: US-TEVA-VS-3198513

PATIENT
  Age: 85 Year
  Sex: Female

DRUGS (3)
  1. CLONIDINE HYDROCHLORIDE [Suspect]
     Active Substance: CLONIDINE HYDROCHLORIDE
     Indication: Product used for unknown indication
     Route: 062
  2. CLONIDINE HYDROCHLORIDE [Suspect]
     Active Substance: CLONIDINE HYDROCHLORIDE
     Route: 062
  3. CLONIDINE [Concomitant]
     Active Substance: CLONIDINE
     Dosage: TIME INTERVAL: 0.33333333 DAYS
     Route: 048

REACTIONS (1)
  - Skin discolouration [Unknown]
